FAERS Safety Report 7997348-0 (Version None)
Quarter: 2011Q4

REPORT INFORMATION
  Report Type: 
  Country: None (occurrence: None)
  Receive Date: 20111212
  Receipt Date: 20111129
  Transmission Date: 20120403
  Serious: Yes (Other)
  Sender: FDA-Public Use
  Company Number: 2011030450

PATIENT
  Sex: Female

DRUGS (1)
  1. HIZENTRA [Suspect]

REACTIONS (2)
  - RHEUMATOID ARTHRITIS [None]
  - FALL [None]
